FAERS Safety Report 6436842-0 (Version None)
Quarter: 2009Q4

REPORT INFORMATION
  Report Type: 
  Country: None (occurrence: None)
  Receive Date: 20091111
  Receipt Date: 20090813
  Transmission Date: 20100525
  Serious: No
  Sender: FDA-Public Use
  Company Number: US-ALLERGAN-0911342US

PATIENT
  Age: 82 Year
  Sex: Female

DRUGS (10)
  1. SANCTURA XR [Suspect]
     Indication: HYPERTONIC BLADDER
     Dosage: 60 MG, QD
     Route: 048
     Dates: start: 20090811, end: 20090812
  2. OSCAL [Concomitant]
  3. ASCORBIC ACID [Concomitant]
  4. VITAMIN D [Concomitant]
  5. VITAMIN E [Concomitant]
  6. LIPOFLAVONOID [Concomitant]
  7. XANAX [Concomitant]
  8. PROZAC [Concomitant]
     Dosage: UNK
  9. EVISTA [Concomitant]
  10. FOSAMAX [Concomitant]
     Indication: OSTEOPOROSIS

REACTIONS (1)
  - URINARY RETENTION [None]
